FAERS Safety Report 24860099 (Version 4)
Quarter: 2025Q1

REPORT INFORMATION
  Report Type: Other
  Country: CA (occurrence: CA)
  Receive Date: 20250120
  Receipt Date: 20250228
  Transmission Date: 20250409
  Serious: Yes (Hospitalization, Other)
  Sender: TOLMAR
  Company Number: CA-20250108-3f54a0

PATIENT
  Age: 74 Year
  Sex: Male

DRUGS (6)
  1. ELIGARD [Suspect]
     Active Substance: LEUPROLIDE ACETATE
     Indication: Prostate cancer
     Dosage: 45 MILLIGRAM, Q 6 MONTH
     Route: 058
     Dates: start: 20240702
  2. ELIGARD [Suspect]
     Active Substance: LEUPROLIDE ACETATE
     Dosage: 45 MILLIGRAM, Q 6 MONTH
     Route: 058
     Dates: start: 20180816
  3. ELIGARD [Suspect]
     Active Substance: LEUPROLIDE ACETATE
     Dosage: 45 MILLIGRAM, Q 6 MONTH
     Route: 058
     Dates: start: 20250221
  4. MORPHINE [Suspect]
     Active Substance: MORPHINE
     Indication: Pain
  5. MORPHINE [Suspect]
     Active Substance: MORPHINE
     Indication: Procedural pain
  6. APIXABAN [Concomitant]
     Active Substance: APIXABAN
     Indication: Anticoagulant therapy

REACTIONS (12)
  - Haemorrhage urinary tract [Unknown]
  - Confusional state [Unknown]
  - Lung neoplasm malignant [Unknown]
  - Back pain [Not Recovered/Not Resolved]
  - Urinary retention [Unknown]
  - Haematuria [Unknown]
  - Dysuria [Unknown]
  - Metastases to bone [Unknown]
  - Cystitis [Unknown]
  - Procedural pain [Unknown]
  - Bone pain [Unknown]
  - Intentional product use issue [Recovered/Resolved]

NARRATIVE: CASE EVENT DATE: 20241201
